FAERS Safety Report 24875557 (Version 1)
Quarter: 2025Q1

REPORT INFORMATION
  Report Type: Spontaneous
  Country: US (occurrence: US)
  Receive Date: 20250122
  Receipt Date: 20250122
  Transmission Date: 20250409
  Serious: Yes (Other)
  Sender: ELI LILLY AND COMPANY
  Company Number: US-ELI_LILLY_AND_COMPANY-US202501009165

PATIENT
  Age: 53 Year
  Sex: Male

DRUGS (1)
  1. TIRZEPATIDE [Suspect]
     Active Substance: TIRZEPATIDE
     Indication: Product used for unknown indication
     Dosage: 75 U, WEEKLY (1/W)
     Route: 065

REACTIONS (2)
  - Neoplasm malignant [Unknown]
  - Product tampering [Unknown]

NARRATIVE: CASE EVENT DATE: 20240201
